FAERS Safety Report 9219436 (Version 1)
Quarter: 2013Q2

REPORT INFORMATION
  Report Type: Spontaneous
  Country: US (occurrence: None)
  Receive Date: 20130405
  Receipt Date: 20130405
  Transmission Date: 20140414
  Serious: Yes (Hospitalization)
  Sender: FDA-Public Use
  Company Number: ACO_35110_2013

PATIENT
  Age: 52 Year
  Sex: Female

DRUGS (2)
  1. AMPYRA (DALFAMPRIDINE) TABLET, 10MG [Suspect]
     Indication: GAIT DISTURBANCE
     Route: 048
     Dates: start: 201205
  2. COPAXONE (GLATIRAMER ACETATE) [Concomitant]

REACTIONS (5)
  - Fall [None]
  - Influenza [None]
  - Dizziness [None]
  - Haematoma [None]
  - Head injury [None]
